FAERS Safety Report 6407457-5 (Version None)
Quarter: 2009Q4

REPORT INFORMATION
  Report Type: 
  Country: None (occurrence: None)
  Receive Date: 20091014
  Receipt Date: 20091005
  Transmission Date: 20100525
  Serious: Yes (Other)
  Sender: FDA-Public Use
  Company Number: 401387

PATIENT
  Age: 53 Year
  Sex: Female

DRUGS (2)
  1. PRECEDEX [Suspect]
     Indication: SEDATIVE THERAPY
     Dosage: 2 MCG/KG/HR ; .2 MCG/KG/HR
  2. (ANESTHETICS NOS) [Concomitant]

REACTIONS (1)
  - OBSTRUCTIVE AIRWAYS DISORDER [None]
